FAERS Safety Report 9407310 (Version 6)
Quarter: 2014Q1

REPORT INFORMATION
  Report Type: Report from Study
  Country: US (occurrence: US)
  Receive Date: 20130718
  Receipt Date: 20140325
  Transmission Date: 20141002
  Serious: Yes (Other)
  Sender: FDA-Public Use
  Company Number: US-PFIZER INC-2013205293

PATIENT
  Age: 55 Year
  Sex: Female
  Weight: 48.2 kg

DRUGS (7)
  1. TOFACITINIB CITRATE [Suspect]
     Indication: RHEUMATOID ARTHRITIS
     Dosage: 10 MG, 2X/DAY
     Route: 048
     Dates: start: 20100916, end: 20130503
  2. METHOTREXATE [Concomitant]
     Indication: RHEUMATOID ARTHRITIS
     Dosage: 10 MG, WEEKLY
     Route: 048
     Dates: start: 2003, end: 20130510
  3. FOLIC ACID [Concomitant]
     Indication: RHEUMATOID ARTHRITIS
     Dosage: 2 MG, UNK
     Route: 048
     Dates: start: 20130510
  4. CRESTOR [Concomitant]
     Indication: BLOOD CHOLESTEROL INCREASED
     Dosage: UNK
     Dates: start: 20130404
  5. CRESTOR [Concomitant]
     Dosage: 10 MG, QD
  6. FLONASE [Concomitant]
     Indication: EAR PAIN
     Dosage: UNK
     Dates: start: 20130508
  7. ARTIFICIAL TEARS [Concomitant]
     Indication: VISION BLURRED
     Dosage: UNK

REACTIONS (2)
  - Lyme disease [Recovered/Resolved]
  - Infectious mononucleosis [Recovered/Resolved]
